FAERS Safety Report 10064287 (Version 1)
Quarter: 2014Q2

REPORT INFORMATION
  Report Type: Spontaneous
  Country: GB (occurrence: None)
  Receive Date: 20140404
  Receipt Date: 20140404
  Transmission Date: 20141212
  Serious: Yes (Disabling, Other)
  Sender: FDA-Public Use
  Company Number: AUR-APL-2014-03985

PATIENT
  Age: 57 Year
  Sex: Male
  Weight: 95.25 kg

DRUGS (1)
  1. SIMVASTATIN [Suspect]
     Indication: HYPOCHOLESTEROLAEMIA
     Dosage: 1 IN 1 D
     Route: 048
     Dates: start: 2006, end: 2012

REACTIONS (3)
  - Penis disorder [None]
  - Painful ejaculation [None]
  - Vein discolouration [None]
